FAERS Safety Report 8243739-2 (Version None)
Quarter: 2012Q1

REPORT INFORMATION
  Report Type: 
  Country: None (occurrence: None)
  Receive Date: 20120329
  Receipt Date: 20110520
  Transmission Date: 20120608
  Serious: No
  Sender: FDA-Public Use
  Company Number: US-MYLANLABS-2011S1010529

PATIENT
  Age: 48 Year
  Sex: Female

DRUGS (1)
  1. EMSAM [Suspect]
     Indication: DEPRESSION
     Dosage: CHANGED Q24H
     Route: 062
     Dates: start: 20110401

REACTIONS (2)
  - OEDEMA PERIPHERAL [None]
  - APPLICATION SITE RASH [None]
